FAERS Safety Report 8111399-7 (Version None)
Quarter: 2012Q1

REPORT INFORMATION
  Report Type: 
  Country: None (occurrence: None)
  Receive Date: 20120203
  Receipt Date: 20111108
  Transmission Date: 20120608
  Serious: No
  Sender: FDA-Public Use
  Company Number: US-GLAXOSMITHKLINE-A0952335A

PATIENT
  Age: 31 Year
  Sex: Male

DRUGS (2)
  1. NO CONCURRENT MEDICATION [Concomitant]
  2. LAMICTAL [Suspect]
     Indication: BIPOLAR DISORDER
     Dosage: 300MG PER DAY
     Route: 048
     Dates: start: 20100101

REACTIONS (5)
  - TREMOR [None]
  - HEADACHE [None]
  - MUSCULOSKELETAL STIFFNESS [None]
  - RASH [None]
  - BACK PAIN [None]
